FAERS Safety Report 15905028 (Version 6)
Quarter: 2020Q2

REPORT INFORMATION
  Report Type: Report from Study
  Country: IT (occurrence: IT)
  Receive Date: 20190204
  Receipt Date: 20200518
  Transmission Date: 20200713
  Serious: Yes (Hospitalization, Other)
  Sender: FDA-Public Use
  Company Number: IT-ACCORD-104933

PATIENT
  Age: 58 Year
  Sex: Male

DRUGS (11)
  1. HYDROCHLOROTHIAZIDE /OLMESARTAN [Suspect]
     Active Substance: HYDROCHLOROTHIAZIDE\OLMESARTAN MEDOXOMIL
     Indication: PRODUCT USED FOR UNKNOWN INDICATION
     Dosage: 64 DF, TOTAL, OVERDOSE INTENTIONAL
     Route: 048
     Dates: start: 20180118, end: 20180118
  2. TRIAZOLAM. [Suspect]
     Active Substance: TRIAZOLAM
     Indication: PRODUCT USED FOR UNKNOWN INDICATION
     Dosage: 20 DF,TOTAL, OVERDOSE INTENTIONAL
     Route: 048
     Dates: start: 20180118, end: 20180118
  3. AMIODARONE [Suspect]
     Active Substance: AMIODARONE
     Indication: PRODUCT USED FOR UNKNOWN INDICATION
     Dosage: 20 DF,TOTAL, OVERDOSE INTENTIONAL
     Route: 048
     Dates: start: 20180118, end: 20180118
  4. HYDROCHLOROTHIAZIDE /OLMESARTAN [Suspect]
     Active Substance: HYDROCHLOROTHIAZIDE\OLMESARTAN MEDOXOMIL
     Indication: PRODUCT USED FOR UNKNOWN INDICATION
     Dosage: 64 DF, TOTAL
     Route: 048
     Dates: start: 20180118, end: 20180118
  5. ATORVASTATIN/ATORVASTATIN CALCIUM [Suspect]
     Active Substance: ATORVASTATIN CALCIUM
     Indication: PRODUCT USED FOR UNKNOWN INDICATION
     Dosage: 50 DF,TOTAL, OVERDOSE INTENTIONAL
     Route: 048
     Dates: start: 20180118, end: 20180118
  6. PALEXIA [Suspect]
     Active Substance: TAPENTADOL HYDROCHLORIDE
     Indication: PRODUCT USED FOR UNKNOWN INDICATION
     Dosage: 80 DF,TOTAL,OVERDOSE INTENTIONAL
     Route: 048
     Dates: start: 20180118, end: 20180118
  7. HYDROCHLOROTHIAZIDE/RAMIPRIL [Suspect]
     Active Substance: HYDROCHLOROTHIAZIDE\RAMIPRIL
     Indication: PRODUCT USED FOR UNKNOWN INDICATION
     Dosage: OVERDOSE, 64 DF TOTAL
     Route: 048
     Dates: start: 20180118, end: 20180118
  8. BISOPROLOL [Suspect]
     Active Substance: BISOPROLOL
     Indication: PRODUCT USED FOR UNKNOWN INDICATION
     Dosage: 28 DF,TOTAL, OVERDOSE INTENTIONAL
     Route: 048
     Dates: start: 20180118, end: 20180118
  9. TAMSULOSIN/TAMSULOSIN HYDROCHLORIDE [Concomitant]
     Active Substance: TAMSULOSIN HYDROCHLORIDE
     Indication: BENIGN PROSTATIC HYPERPLASIA
     Route: 048
  10. AMLODIPINE [Suspect]
     Active Substance: AMLODIPINE BESYLATE
     Indication: PRODUCT USED FOR UNKNOWN INDICATION
     Dosage: 14 DF,TOTAL, OVERDOSE INTENTIONAL
     Route: 048
     Dates: start: 20180118, end: 20180118
  11. ELIQUIS [Suspect]
     Active Substance: APIXABAN
     Indication: PRODUCT USED FOR UNKNOWN INDICATION
     Dosage: 60 DF,TOTAL, OVERDOSE INTENTIONAL
     Route: 048
     Dates: start: 20180118, end: 20180118

REACTIONS (4)
  - Confusional state [Recovering/Resolving]
  - Drug abuse [Unknown]
  - Urinary incontinence [Recovering/Resolving]
  - Intentional overdose [Unknown]

NARRATIVE: CASE EVENT DATE: 20180118
